FAERS Safety Report 21703827 (Version 1)
Quarter: 2022Q4

REPORT INFORMATION
  Report Type: Spontaneous
  Country: GB (occurrence: GB)
  Receive Date: 20221209
  Receipt Date: 20221209
  Transmission Date: 20230113
  Serious: Yes (Life-Threatening, Hospitalization, Other)
  Sender: FDA-Public Use
  Company Number: GB-MLMSERVICE-20221125-3942530-1

PATIENT

DRUGS (4)
  1. PREDNISOLONE [Suspect]
     Active Substance: PREDNISOLONE
     Indication: Follicular lymphoma
     Dosage: UNK
  2. CYCLOPHOSPHAMIDE [Suspect]
     Active Substance: CYCLOPHOSPHAMIDE
     Indication: Follicular lymphoma
     Dosage: UNK
  3. VINCRISTINE [Suspect]
     Active Substance: VINCRISTINE
     Indication: Follicular lymphoma
     Dosage: UNK
  4. OBINUTUZUMAB [Suspect]
     Active Substance: OBINUTUZUMAB
     Indication: Follicular lymphoma
     Dosage: UNK

REACTIONS (1)
  - Neutropenic sepsis [Recovered/Resolved]
